FAERS Safety Report 8764202 (Version 1)
Quarter: 2012Q4

REPORT INFORMATION
  Report Type: 
  Country: FR (occurrence: FR)
  Receive Date: 20120831
  Receipt Date: 20120831
  Transmission Date: 20130627
  Serious: Yes (Death)
  Sender: FDA-Public Use
  Company Number: FR-COVIDIEN/TYCO HEALTHCARE/MALLINCKRODT-T201203275

PATIENT
  Age: 71 Year
  Sex: Female

DRUGS (1)
  1. SODIUM IODIDE (I 131) [Suspect]
     Indication: RADIOTHERAPY
     Dosage: UNK
     Route: 065

REACTIONS (1)
  - Acute leukaemia [Fatal]
